FAERS Safety Report 6565490-7 (Version None)
Quarter: 2010Q1

REPORT INFORMATION
  Report Type: 
  Country: None (occurrence: None)
  Receive Date: 20100201
  Receipt Date: 20100127
  Transmission Date: 20100710
  Serious: Yes (Death, Life-Threatening, Hospitalization, Other)
  Sender: FDA-Public Use
  Company Number: ES-CELGENEUS-144-50794-09091340

PATIENT
  Sex: Male
  Weight: 64 kg

DRUGS (4)
  1. VIDAZA [Suspect]
     Route: 058
     Dates: start: 20090803, end: 20090831
  2. VIDAZA [Suspect]
     Route: 058
     Dates: end: 20090907
  3. ERYTHROPOIETIN BETA [Suspect]
     Route: 058
     Dates: start: 20090803, end: 20090831
  4. ERYTHROPOIETIN BETA [Suspect]
     Route: 058
     Dates: end: 20090907

REACTIONS (3)
  - RESPIRATORY TRACT INFECTION [None]
  - SEPTIC SHOCK [None]
  - THROMBOCYTOPENIA [None]
